FAERS Safety Report 15776320 (Version 2)
Quarter: 2019Q1

REPORT INFORMATION
  Report Type: Report from Study
  Country: KR (occurrence: KR)
  Receive Date: 20181231
  Receipt Date: 20190111
  Transmission Date: 20190417
  Serious: Yes (Hospitalization)
  Sender: FDA-Public Use
  Company Number: KR-B.I. PHARMACEUTICALS,INC./RIDGEFIELD-2018-BI-062045

PATIENT
  Age: 77 Year
  Sex: Female
  Weight: 35 kg

DRUGS (6)
  1. PACLITAXEL. [Suspect]
     Active Substance: PACLITAXEL
     Dosage: STRENGTH: 60MG/M2
     Route: 042
     Dates: start: 20181114, end: 20181129
  2. AFATINIB [Suspect]
     Active Substance: AFATINIB
     Route: 048
     Dates: start: 20181114
  3. PACLITAXEL. [Suspect]
     Active Substance: PACLITAXEL
     Dosage: STRENGTH: 60MG/M2
     Route: 042
     Dates: start: 20181220, end: 20181231
  4. PACLITAXEL. [Suspect]
     Active Substance: PACLITAXEL
     Indication: GASTRIC CANCER
     Dosage: STRENGTH: 60MG/M2
     Route: 042
     Dates: start: 20181018, end: 20181026
  5. AFATINIB [Suspect]
     Active Substance: AFATINIB
     Indication: GASTRIC CANCER
     Route: 048
     Dates: start: 20181018, end: 20181031
  6. PACLITAXEL. [Suspect]
     Active Substance: PACLITAXEL
     Dosage: STRENGTH: 60MG/M2
     Route: 042
     Dates: start: 20181231

REACTIONS (1)
  - Anaemia [Recovered/Resolved]

NARRATIVE: CASE EVENT DATE: 20181227
